FAERS Safety Report 19181882 (Version 3)
Quarter: 2021Q3

REPORT INFORMATION
  Report Type: Report from Study
  Country: GB (occurrence: GB)
  Receive Date: 20210426
  Receipt Date: 20210825
  Transmission Date: 20211014
  Serious: Yes (Other)
  Sender: FDA-Public Use
  Company Number: NVSC2021GB089336

PATIENT
  Sex: Female

DRUGS (1)
  1. ERELZI [Suspect]
     Active Substance: ETANERCEPT-SZZS
     Indication: PRODUCT USED FOR UNKNOWN INDICATION
     Dosage: 50 MG, QW
     Route: 065

REACTIONS (4)
  - Product dose omission issue [Unknown]
  - Liver disorder [Unknown]
  - Condition aggravated [Unknown]
  - Hepatic enzyme increased [Unknown]
